FAERS Safety Report 19367321 (Version 1)
Quarter: 2021Q2

REPORT INFORMATION
  Report Type: Spontaneous
  Country: IT (occurrence: IT)
  Receive Date: 20210603
  Receipt Date: 20210603
  Transmission Date: 20210717
  Serious: Yes (Hospitalization)
  Sender: FDA-Public Use
  Company Number: IT-PFIZER INC-2021590432

PATIENT
  Age: 41 Year
  Sex: Male

DRUGS (1)
  1. ZITROMAX [Suspect]
     Active Substance: AZITHROMYCIN
     Indication: COVID-19

REACTIONS (2)
  - Acute respiratory distress syndrome [Unknown]
  - Off label use [Unknown]
